FAERS Safety Report 16771525 (Version 4)
Quarter: 2020Q1

REPORT INFORMATION
  Report Type: Spontaneous
  Country: IN (occurrence: IN)
  Receive Date: 20190904
  Receipt Date: 20200206
  Transmission Date: 20200409
  Serious: Yes (Other)
  Sender: FDA-Public Use
  Company Number: IN-PFIZER INC-2019380413

PATIENT
  Age: 55 Year
  Sex: Female

DRUGS (2)
  1. ZOLDRIA [Concomitant]
     Active Substance: ZOLEDRONIC ACID
     Dosage: ^ONCE DAY 3 MONTHS^
     Route: 042
  2. SUTENT [Suspect]
     Active Substance: SUNITINIB MALATE
     Indication: METASTATIC RENAL CELL CARCINOMA
     Dosage: 50 MG, 1X/DAY
     Route: 048
     Dates: start: 20180912

REACTIONS (1)
  - Pancreatitis acute [Unknown]
